FAERS Safety Report 15321820 (Version 2)
Quarter: 2018Q4

REPORT INFORMATION
  Report Type: Spontaneous
  Country: US (occurrence: US)
  Receive Date: 20180827
  Receipt Date: 20181002
  Transmission Date: 20190204
  Serious: Yes (Other)
  Sender: FDA-Public Use
  Company Number: US-NOVOPROD-617645

PATIENT
  Sex: Male

DRUGS (1)
  1. LEVEMIR [Suspect]
     Active Substance: INSULIN DETEMIR
     Indication: TYPE 2 DIABETES MELLITUS
     Dosage: AM 45 UNITS / PM 15 UNITS
     Route: 058

REACTIONS (5)
  - Incorrect dose administered by device [Unknown]
  - Road traffic accident [Unknown]
  - Device issue [Unknown]
  - Loss of consciousness [Unknown]
  - Diabetes mellitus inadequate control [Not Recovered/Not Resolved]
